FAERS Safety Report 8979058 (Version 1)
Quarter: 2012Q4

REPORT INFORMATION
  Report Type: 
  Country: US (occurrence: US)
  Receive Date: 20121221
  Receipt Date: 20121221
  Transmission Date: 20130627
  Serious: No
  Sender: FDA-Public Use
  Company Number: US-ASTRAZENECA-2012SE19438

PATIENT
  Age: 51 Year
  Sex: Female

DRUGS (2)
  1. SYMBICORT PMDI [Suspect]
     Dosage: 160/4.5 mg daily
     Route: 055
  2. NEXIUM [Suspect]
     Route: 048

REACTIONS (1)
  - Nasopharyngitis [Unknown]
